FAERS Safety Report 5325071-X (Version None)
Quarter: 2007Q2

REPORT INFORMATION
  Report Type: 
  Country: None (occurrence: None)
  Receive Date: 20070515
  Receipt Date: 20070514
  Transmission Date: 20071010
  Serious: Yes (Hospitalization)
  Sender: FDA-Public Use
  Company Number: US-BRISTOL-MYERS SQUIBB COMPANY-13757471

PATIENT
  Age: 60 Year
  Sex: Female

DRUGS (14)
  1. CYTOXAN [Suspect]
     Indication: BREAST CANCER
     Route: 042
     Dates: start: 20070326, end: 20070326
  2. NEULASTA [Suspect]
     Indication: BREAST CANCER
     Route: 042
     Dates: start: 20070206, end: 20070327
  3. ADRIAMYCIN PFS [Suspect]
     Indication: BREAST CANCER
     Route: 042
     Dates: start: 20070326, end: 20070326
  4. BEVACIZUMAB [Suspect]
     Indication: BREAST CANCER
     Route: 042
     Dates: start: 20070326, end: 20070326
  5. SENOKOT [Concomitant]
     Indication: CONSTIPATION
     Route: 048
     Dates: start: 20070206
  6. ALOXI [Concomitant]
     Indication: PROPHYLAXIS
     Route: 042
     Dates: start: 20070205
  7. ATIVAN [Concomitant]
     Indication: PROPHYLAXIS
     Route: 048
     Dates: start: 20070326
  8. ATIVAN [Concomitant]
     Indication: INSOMNIA
     Route: 048
     Dates: start: 20070326
  9. CARDIZEM LA [Concomitant]
     Indication: HYPERTENSION
     Route: 048
     Dates: start: 20070125
  10. CHANTIX [Concomitant]
     Indication: HYPERTENSION
     Route: 048
     Dates: start: 20070131
  11. EMEND [Concomitant]
     Indication: PROPHYLAXIS
     Route: 042
     Dates: start: 20070326
  12. DECADRON [Concomitant]
     Indication: PROPHYLAXIS
     Route: 042
     Dates: start: 20070326
  13. ASPIRIN [Concomitant]
     Indication: PROPHYLAXIS
     Route: 048
     Dates: start: 20070208
  14. ATORVASTATIN CALCIUM [Concomitant]
     Indication: HYPERCHOLESTEROLAEMIA
     Dates: start: 20070209

REACTIONS (3)
  - CEREBRAL INFARCTION [None]
  - CEREBROVASCULAR ACCIDENT [None]
  - HAEMOGLOBIN DECREASED [None]
